FAERS Safety Report 6604229-3 (Version None)
Quarter: 2010Q1

REPORT INFORMATION
  Report Type: 
  Country: None (occurrence: None)
  Receive Date: 20100226
  Receipt Date: 20090713
  Transmission Date: 20100710
  Serious: No
  Sender: FDA-Public Use
  Company Number: A0796665A

PATIENT
  Age: 57 Year
  Sex: Female

DRUGS (3)
  1. LAMOTRIGINE [Suspect]
     Indication: BIPOLAR DISORDER
     Dosage: 100MG PER DAY
     Route: 048
     Dates: start: 20090501
  2. EFFEXOR [Concomitant]
  3. SUMATRIPTAN SUCCINATE [Concomitant]

REACTIONS (1)
  - HEADACHE [None]
